FAERS Safety Report 25230138 (Version 2)
Quarter: 2025Q2

REPORT INFORMATION
  Report Type: Spontaneous
  Country: JP (occurrence: JP)
  Receive Date: 20250423
  Receipt Date: 20250509
  Transmission Date: 20250716
  Serious: Yes (Hospitalization, Other)
  Sender: PFIZER
  Company Number: JP-PFIZER INC-PV202500046623

PATIENT
  Age: 79 Year
  Sex: Male

DRUGS (11)
  1. ELREXFIO [Interacting]
     Active Substance: ELRANATAMAB-BCMM
     Indication: Plasma cell myeloma
     Route: 058
     Dates: start: 20250218, end: 20250218
  2. ELREXFIO [Interacting]
     Active Substance: ELRANATAMAB-BCMM
     Route: 058
     Dates: start: 20250221, end: 20250221
  3. ELREXFIO [Interacting]
     Active Substance: ELRANATAMAB-BCMM
     Route: 058
     Dates: start: 20250225, end: 20250225
  4. ELREXFIO [Interacting]
     Active Substance: ELRANATAMAB-BCMM
     Route: 058
     Dates: start: 20250319, end: 20250319
  5. WARFARIN [Interacting]
     Active Substance: WARFARIN
     Indication: Cardiac disorder
     Dosage: 1.5 MG, 1X/DAY, AT EVENING
  6. BISOPROLOL FUMARATE [Concomitant]
     Active Substance: BISOPROLOL FUMARATE
     Indication: Cardiac disorder
     Dosage: 0.625 MG, 2X/DAY
  7. ESOMEPRAZOLE [Concomitant]
     Active Substance: ESOMEPRAZOLE
     Indication: Cardiac disorder
     Dosage: 20 MG, 1X/DAY
  8. METHYLCOBALAMIN [Concomitant]
     Active Substance: METHYLCOBALAMIN
     Indication: Neuropathy peripheral
     Dosage: 500 UG, 3X/DAY
  9. ATOVAQUONE [Concomitant]
     Active Substance: ATOVAQUONE
     Indication: Prophylaxis
     Dosage: 10 ML(5ML X2), DAILY
  10. ACYCLOVIR [Concomitant]
     Active Substance: ACYCLOVIR
     Indication: Prophylaxis
     Dosage: 200 MG, 1X/DAY
  11. FLUCONAZOLE [Concomitant]
     Active Substance: FLUCONAZOLE
     Indication: Prophylaxis
     Dosage: 100 MG, 1X/DAY

REACTIONS (5)
  - Urosepsis [Recovered/Resolved]
  - Cytomegalovirus infection [Recovered/Resolved]
  - Drug interaction [Unknown]
  - International normalised ratio increased [Recovering/Resolving]
  - Coagulopathy [Recovering/Resolving]

NARRATIVE: CASE EVENT DATE: 20250319
